FAERS Safety Report 5290659-1 (Version None)
Quarter: 2007Q2

REPORT INFORMATION
  Report Type: 
  Country: None (occurrence: None)
  Receive Date: 20070402
  Receipt Date: 20070327
  Transmission Date: 20071010
  Serious: Yes (Death, Hospitalization, Disabling, Other)
  Sender: FDA-Public Use
  Company Number: 2006S1000005

PATIENT
  Age: 7 Day
  Sex: Male

DRUGS (17)
  1. NITRIC OXIDE [Suspect]
     Indication: LUNG DISORDER
     Dosage: 5 PPM; INH_GAS; INH
     Route: 055
     Dates: start: 20051227, end: 20060108
  2. NITRIC OXIDE [Suspect]
     Indication: PROPHYLAXIS
     Dosage: 5 PPM; INH_GAS; INH
     Route: 055
     Dates: start: 20051227, end: 20060108
  3. AMPICILLIN [Concomitant]
  4. AMIKACIN [Concomitant]
  5. IBUPROFEN [Concomitant]
  6. VANCOMYCIN [Concomitant]
  7. CEFOTAXIME SODIUM [Concomitant]
  8. FENTANYL [Concomitant]
  9. LASIX [Concomitant]
  10. HYDROCORTISONE [Concomitant]
  11. VECURONIUM (VECURONIUM) [Concomitant]
  12. DOPAMINE HCL [Concomitant]
  13. IBUPROFEN [Concomitant]
  14. NORCURON [Concomitant]
  15. SODIUM BICARBONATE IN PLASTIC CONTAINER [Concomitant]
  16. IMMUNOGLOBULINS (IMMUNOGLOBULINS) [Concomitant]
  17. ALVOFACT (PHOSPHOLIPIDFRACTION, BOVINE LUNG) [Concomitant]

REACTIONS (6)
  - CEREBRAL INFARCTION [None]
  - HYPOXIA [None]
  - INTRAVENTRICULAR HAEMORRHAGE NEONATAL [None]
  - NEONATAL RESPIRATORY DISTRESS SYNDROME [None]
  - SEPSIS NEONATAL [None]
  - THROMBOCYTOPENIA [None]
